FAERS Safety Report 6098065-7 (Version None)
Quarter: 2009Q1

REPORT INFORMATION
  Report Type: 
  Country: None (occurrence: None)
  Receive Date: 20090227
  Receipt Date: 20021015
  Transmission Date: 20090719
  Serious: Yes (Other)
  Sender: FDA-Public Use
  Company Number: JP-ASTRAZENECA-2009AP01436

PATIENT
  Age: 19156 Day
  Sex: Male
  Weight: 65 kg

DRUGS (2)
  1. IRESSA [Suspect]
     Indication: NON-SMALL CELL LUNG CANCER
     Route: 048
     Dates: start: 20020627, end: 20020930
  2. MORPHINE SULFATE [Concomitant]
     Indication: CANCER PAIN

REACTIONS (1)
  - HEPATITIS [None]
